FAERS Safety Report 7730918-3 (Version None)
Quarter: 2011Q3

REPORT INFORMATION
  Report Type: 
  Country: None (occurrence: None)
  Receive Date: 20110906
  Receipt Date: 20110901
  Transmission Date: 20111222
  Serious: Yes (Death, Hospitalization)
  Sender: FDA-Public Use
  Company Number: US-PFIZER INC-2010126776

PATIENT
  Sex: Female

DRUGS (3)
  1. SUTENT [Suspect]
     Indication: METASTATIC RENAL CELL CARCINOMA
     Dosage: 50 MG, 1X/DAY, X 28 DAYS EVERY 42 DAYS
     Route: 048
     Dates: start: 20100912, end: 20101001
  2. SUTENT [Suspect]
     Dosage: 25 MG, 1X/DAY, X 28 DAYS EVERY 42 DAYS
     Route: 048
     Dates: start: 20101018
  3. SUTENT [Suspect]
     Dosage: 12.5MG WITH 25MG DAILY, FOR 28 DAYS  EVERY 42 DAYS
     Route: 048

REACTIONS (3)
  - AMNESIA [None]
  - DEATH [None]
  - CONFUSIONAL STATE [None]
